FAERS Safety Report 7816272 (Version 2)
Quarter: 2013Q1

REPORT INFORMATION
  Report Type: Spontaneous
  Country: US (occurrence: None)
  Receive Date: 20110125
  Receipt Date: 20121108
  Transmission Date: 20140127
  Serious: Yes (Disabling, Other)
  Sender: FDA-Public Use
  Company Number: 2011MA000452

PATIENT
  Sex: Male

DRUGS (8)
  1. METOCLOPRAMIDE [Suspect]
     Indication: GASTROINTESTINAL DISORDER
     Dosage: PO
     Route: 048
     Dates: start: 20080721, end: 20090710
  2. BENAZEPRIL [Concomitant]
  3. CARBIDOPA-LEVODOPA [Concomitant]
  4. GLIMEPIRIDE [Concomitant]
  5. LIPITOR [Concomitant]
  6. METFORMIN [Concomitant]
  7. METOPROLOL [Concomitant]
  8. NEXIUM [Concomitant]

REACTIONS (16)
  - Movement disorder [None]
  - Nervous system disorder [None]
  - Multiple injuries [None]
  - Extrapyramidal disorder [None]
  - Economic problem [None]
  - Activities of daily living impaired [None]
  - Deformity [None]
  - Pain [None]
  - Anxiety [None]
  - Partner stress [None]
  - Tremor [None]
  - Dysgraphia [None]
  - Paraesthesia [None]
  - Muscle spasms [None]
  - Parkinson^s disease [None]
  - Leukoencephalopathy [None]
